FAERS Safety Report 22980225 (Version 3)
Quarter: 2024Q2

REPORT INFORMATION
  Report Type: Spontaneous
  Country: IN (occurrence: IN)
  Receive Date: 20230925
  Receipt Date: 20240604
  Transmission Date: 20240716
  Serious: Yes (Other)
  Sender: FDA-Public Use
  Company Number: IN-PFIZER INC-2019433326

PATIENT
  Age: 51 Year
  Sex: Male

DRUGS (6)
  1. SUTENT [Suspect]
     Active Substance: SUNITINIB MALATE
     Indication: Metastatic renal cell carcinoma
     Dosage: 50 MG, CYCLIC (ONCE DAILY, 2 WEEKS ON AND 1 WEEK OFF FOR 3 MONTHS)
     Route: 048
     Dates: start: 20171113
  2. SUTENT [Suspect]
     Active Substance: SUNITINIB MALATE
     Dosage: 37.5 MG
  3. SUTENT [Suspect]
     Active Substance: SUNITINIB MALATE
     Dosage: 50 MG, ON X 2 WKS 1 WKS OFF X 6 MONTHS
     Route: 048
     Dates: start: 201710
  4. CTD [Concomitant]
     Dosage: 12.5 MG, 1X/DAY
  5. AMCARD-AT [Concomitant]
     Dosage: 1 DF, 1X/DAY
  6. ZOLEDRONIC ACID [Concomitant]
     Active Substance: ZOLEDRONIC ACID
     Dosage: 4 MG INFUSION OVER 30 MINUTES

REACTIONS (10)
  - Anal fistula [Not Recovered/Not Resolved]
  - Neoplasm progression [Unknown]
  - Haemoptysis [Unknown]
  - Hypertension [Unknown]
  - Haematuria [Unknown]
  - Diarrhoea [Unknown]
  - Urinary tract disorder [Unknown]
  - Cough [Unknown]
  - Pruritus [Unknown]
  - Intentional product use issue [Unknown]

NARRATIVE: CASE EVENT DATE: 20190801
